FAERS Safety Report 24642854 (Version 2)
Quarter: 2024Q4

REPORT INFORMATION
  Report Type: Spontaneous
  Country: US (occurrence: US)
  Receive Date: 20241120
  Receipt Date: 20241126
  Transmission Date: 20250114
  Serious: Yes (Hospitalization, Other)
  Sender: PFIZER
  Company Number: US-PFIZER INC-202400303351

PATIENT
  Age: 52 Year
  Sex: Male

DRUGS (1)
  1. OXBRYTA [Suspect]
     Active Substance: VOXELOTOR
     Dosage: UNK
     Dates: end: 202411

REACTIONS (5)
  - Head injury [Unknown]
  - Nasal injury [Unknown]
  - Loss of consciousness [Unknown]
  - Recalled product administered [Unknown]
  - Fall [Unknown]

NARRATIVE: CASE EVENT DATE: 20240101
